FAERS Safety Report 9965775 (Version 1)
Quarter: 2014Q1

REPORT INFORMATION
  Report Type: Report from Study
  Country: US (occurrence: US)
  Receive Date: 20140305
  Receipt Date: 20140305
  Transmission Date: 20141002
  Serious: No
  Sender: FDA-Public Use
  Company Number: US-ABBVIE-13P-163-1123358-00

PATIENT
  Age: 55 Year
  Sex: Female

DRUGS (19)
  1. HUMIRA [Suspect]
     Indication: RHEUMATOID ARTHRITIS
     Dates: start: 20130718
  2. TYLENOL [Concomitant]
     Indication: PRODUCT USED FOR UNKNOWN INDICATION
  3. ANTI-DIARRHEAL MEDICATION [Concomitant]
     Indication: PRODUCT USED FOR UNKNOWN INDICATION
  4. PRISTIQ [Concomitant]
     Indication: DEPRESSION
     Dosage: 50 MG DAILY
  5. ATROVENT [Concomitant]
     Indication: ASTHMA
     Dosage: 2 PUFFS THREE TIMES PER DAY AS NEEDED
  6. QVAR [Concomitant]
     Indication: ASTHMA
     Dosage: 2 PUFFS THREE TIMES PER DAY AS NEEDED
  7. SYNTHROID [Concomitant]
     Indication: HYPOTHYROIDISM
     Dosage: 100 MCG DAILY
  8. CRESTOR [Concomitant]
     Indication: BLOOD CHOLESTEROL INCREASED
     Dosage: 10 MG 1/2 PILL DAILY
  9. ZYRTEC [Concomitant]
     Indication: HYPERSENSITIVITY
     Dosage: 10 MG DAILY
  10. ZOLPIDEM TARTRATE [Concomitant]
     Indication: SLEEP DISORDER
     Dosage: 10 MG BEFORE BED
  11. ALPRAZOLAM [Concomitant]
     Indication: STRESS
     Dosage: UP TO FOUR DAILY AS NEEDED
  12. BISOPROLOL FUMARATE [Concomitant]
     Indication: CARDIAC DISORDER
     Dosage: 5 MG DAILY
  13. NITROGLYCERINE [Concomitant]
     Indication: PRODUCT USED FOR UNKNOWN INDICATION
     Dosage: ON IN MORNING AND REMOVE AT NIGHT
  14. MECLIZINE [Concomitant]
     Indication: EAR DISORDER
     Dosage: 25 MG UP TO 4 PER DAY
  15. MECLIZINE [Concomitant]
     Indication: DIZZINESS
  16. SINGULAIR [Concomitant]
     Indication: ASTHMA
     Dosage: 10 MG DAILY
  17. PREVACID [Concomitant]
  18. DICYCLOMINE [Concomitant]
     Indication: IRRITABLE BOWEL SYNDROME
  19. APO WARFARIN [Concomitant]
     Indication: THROMBOSIS
     Dosage: 20 MG AT BEDTIME

REACTIONS (1)
  - Headache [Not Recovered/Not Resolved]
